FAERS Safety Report 11080197 (Version 2)
Quarter: 2015Q3

REPORT INFORMATION
  Report Type: Spontaneous
  Country: US (occurrence: None)
  Receive Date: 20150429
  Receipt Date: 20150813
  Transmission Date: 20151125
  Serious: Yes (Death)
  Sender: FDA-Public Use
  Company Number: 2015050622

PATIENT
  Age: 66 Year
  Sex: Male

DRUGS (1)
  1. STIMATE [Suspect]
     Active Substance: DESMOPRESSIN ACETATE
     Indication: COAGULOPATHY
     Dosage: 300 UG, PRN, DOSING PERIOD 01APR2015 TO 19APR2015 NASAL)
     Route: 045
     Dates: start: 20150401, end: 20150419

REACTIONS (1)
  - Death [None]

NARRATIVE: CASE EVENT DATE: 20150418
